FAERS Safety Report 4822887-0 (Version None)
Quarter: 2005Q4

REPORT INFORMATION
  Report Type: 
  Country: None (occurrence: None)
  Receive Date: 20051108
  Receipt Date: 20050718
  Transmission Date: 20060501
  Serious: Yes (Hospitalization, Other)
  Sender: FDA-Public Use
  Company Number: 2005UW10695

PATIENT
  Age: 70 Year
  Sex: Male
  Weight: 92.3 kg

DRUGS (19)
  1. IRESSA [Suspect]
     Indication: RENAL CELL CARCINOMA STAGE UNSPECIFIED
     Route: 048
     Dates: start: 20050627
  2. IRESSA [Suspect]
     Route: 048
     Dates: start: 20050809, end: 20050831
  3. PEG-INTRON RM [Suspect]
     Indication: RENAL CELL CARCINOMA STAGE UNSPECIFIED
     Route: 058
     Dates: start: 20050627
  4. PEG-INTRON RM [Suspect]
     Route: 058
     Dates: start: 20050809, end: 20050831
  5. GLYBURIDE [Concomitant]
     Indication: DIABETES MELLITUS NON-INSULIN-DEPENDENT
     Route: 048
     Dates: start: 19990101
  6. LISINOPRIL [Concomitant]
     Indication: HYPERTENSION
     Route: 048
     Dates: start: 19990101
  7. TAMSULOSIN [Concomitant]
     Route: 048
     Dates: start: 20050101
  8. ATENOLOL [Concomitant]
     Indication: HEART RATE IRREGULAR
     Route: 048
     Dates: start: 20000101
  9. HYDROCHLOROTHIAZIDE [Concomitant]
  10. FINASTERIDE [Concomitant]
  11. ALPRAZOLAM [Concomitant]
  12. HYDROCODONE [Concomitant]
  13. VICODIN [Concomitant]
  14. ASCORBIC ACID [Concomitant]
  15. IRON [Concomitant]
  16. DILAUDID [Concomitant]
  17. OMEPRAZOLE [Concomitant]
  18. CELEXA [Concomitant]
     Indication: DEPRESSION
     Route: 048
  19. PROCRIT [Concomitant]

REACTIONS (24)
  - AGRANULOCYTOSIS [None]
  - ASPARTATE AMINOTRANSFERASE INCREASED [None]
  - ASTHENIA [None]
  - BLOOD ALKALINE PHOSPHATASE INCREASED [None]
  - BLOOD BICARBONATE DECREASED [None]
  - BLOOD GLUCOSE INCREASED [None]
  - CARDIOMEGALY [None]
  - COUGH [None]
  - DECREASED APPETITE [None]
  - DEHYDRATION [None]
  - DYSGEUSIA [None]
  - FATIGUE [None]
  - HAEMATOCRIT DECREASED [None]
  - HAEMOGLOBIN DECREASED [None]
  - HYPERGLYCAEMIA [None]
  - HYPONATRAEMIA [None]
  - NAUSEA [None]
  - ORAL INTAKE REDUCED [None]
  - PLATELET COUNT INCREASED [None]
  - RASH PUSTULAR [None]
  - RED BLOOD CELL COUNT DECREASED [None]
  - RENAL CANCER METASTATIC [None]
  - RENAL FAILURE [None]
  - WEIGHT DECREASED [None]
